FAERS Safety Report 14740800 (Version 1)
Quarter: 2018Q2

REPORT INFORMATION
  Report Type: Spontaneous
  Country: US (occurrence: US)
  Receive Date: 20180410
  Receipt Date: 20180410
  Transmission Date: 20180711
  Serious: Yes (Hospitalization, Other)
  Sender: FDA-Public Use
  Company Number: US-GLAXOSMITHKLINE-US2018059372

PATIENT
  Age: 78 Year
  Sex: Female

DRUGS (2)
  1. VENTOLIN HFA [Concomitant]
     Active Substance: ALBUTEROL SULFATE
  2. ANORO ELLIPTA [Suspect]
     Active Substance: UMECLIDINIUM BROMIDE\VILANTEROL TRIFENATATE
     Indication: CHRONIC OBSTRUCTIVE PULMONARY DISEASE
     Dosage: 1 PUFF(S), QD
     Route: 055
     Dates: start: 2015

REACTIONS (6)
  - Procedural complication [Unknown]
  - Hypertension [Unknown]
  - Drug dose omission [Unknown]
  - Carotid artery occlusion [Recovering/Resolving]
  - Intensive care [Unknown]
  - Cardiac operation [Unknown]

NARRATIVE: CASE EVENT DATE: 201710
